FAERS Safety Report 9030426 (Version 2)
Quarter: 2013Q1

REPORT INFORMATION
  Report Type: Report from Study
  Country: JP (occurrence: JP)
  Receive Date: 20130122
  Receipt Date: 20130320
  Transmission Date: 20140127
  Serious: Yes (Death)
  Sender: FDA-Public Use
  Company Number: JP-UCBSA-075936

PATIENT
  Age: 68 Year
  Sex: Female
  Weight: 50.8 kg

DRUGS (22)
  1. E KEPPRA [Suspect]
     Indication: COMPLEX PARTIAL SEIZURES
     Route: 048
     Dates: start: 20110825, end: 20110907
  2. E KEPPRA [Suspect]
     Indication: PARTIAL SEIZURES WITH SECONDARY GENERALISATION
     Route: 048
     Dates: start: 20110825, end: 20110907
  3. E KEPPRA [Suspect]
     Indication: COMPLEX PARTIAL SEIZURES
     Route: 048
     Dates: start: 20110908, end: 20111124
  4. E KEPPRA [Suspect]
     Indication: PARTIAL SEIZURES WITH SECONDARY GENERALISATION
     Route: 048
     Dates: start: 20110908, end: 20111124
  5. LAMICTAL [Concomitant]
     Indication: PARTIAL SEIZURES WITH SECONDARY GENERALISATION
     Dosage: DAILY DOSE: 150 MG
     Route: 048
     Dates: end: 20110907
  6. LAMICTAL [Concomitant]
     Indication: COMPLEX PARTIAL SEIZURES
     Dosage: DAILY DOSE: 150 MG
     Route: 048
     Dates: end: 20110907
  7. LAMICTAL [Concomitant]
     Indication: PARTIAL SEIZURES WITH SECONDARY GENERALISATION
     Dosage: DAILY DOSE: 100 MG
     Route: 048
     Dates: start: 20110908, end: 20110921
  8. LAMICTAL [Concomitant]
     Indication: COMPLEX PARTIAL SEIZURES
     Dosage: DAILY DOSE: 100 MG
     Route: 048
     Dates: start: 20110908, end: 20110921
  9. LAMICTAL [Concomitant]
     Indication: PARTIAL SEIZURES WITH SECONDARY GENERALISATION
     Dosage: DAILY DOSE: 50 MG
     Route: 048
     Dates: start: 20110922, end: 20111019
  10. LAMICTAL [Concomitant]
     Indication: COMPLEX PARTIAL SEIZURES
     Dosage: DAILY DOSE: 50 MG
     Route: 048
     Dates: start: 20110922, end: 20111019
  11. BAYASPIRIN [Concomitant]
     Route: 048
  12. MICARDIS [Concomitant]
     Route: 048
  13. HERBESSER R [Concomitant]
  14. FLUITRAN [Concomitant]
     Route: 048
  15. GASMOTIN [Concomitant]
     Route: 048
  16. PARIET [Concomitant]
     Route: 048
  17. MEVALOTIN [Concomitant]
     Route: 048
  18. MYSLEE [Concomitant]
     Route: 048
  19. THEODUR [Concomitant]
     Route: 048
  20. AZEPTIN [Concomitant]
     Route: 048
  21. ADOAIR [Concomitant]
     Route: 055
  22. ONON [Concomitant]
     Route: 048

REACTIONS (1)
  - Aortic dissection [Fatal]
